FAERS Safety Report 6690649-8 (Version None)
Quarter: 2010Q2

REPORT INFORMATION
  Report Type: 
  Country: None (occurrence: None)
  Receive Date: 20100421
  Receipt Date: 20100413
  Transmission Date: 20101027
  Serious: Yes (Hospitalization)
  Sender: FDA-Public Use
  Company Number: 940404-107040182

PATIENT
  Age: 41 Year
  Sex: Female

DRUGS (14)
  1. LEVOFLOXACIN [Suspect]
     Route: 048
     Dates: start: 19940211, end: 19940317
  2. LEVOFLOXACIN [Suspect]
     Indication: PULMONARY TUBERCULOSIS
     Route: 048
     Dates: start: 19940211, end: 19940317
  3. ISONIAZID [Suspect]
     Indication: PULMONARY TUBERCULOSIS
     Route: 065
     Dates: start: 19940211, end: 19940324
  4. PYRIDOXINE HCL [Suspect]
     Indication: PULMONARY TUBERCULOSIS
     Route: 065
     Dates: start: 19940211, end: 19940324
  5. KANAMYCIN [Suspect]
     Indication: PULMONARY TUBERCULOSIS
     Route: 041
     Dates: start: 19940211, end: 19940222
  6. KANAMYCIN [Suspect]
     Route: 030
     Dates: start: 19940222, end: 19940317
  7. RIFAMPIN [Suspect]
     Indication: PULMONARY TUBERCULOSIS
     Route: 065
     Dates: start: 19940211
  8. ETHAMBUTOL HYDROCHLORIDE [Suspect]
     Indication: PULMONARY TUBERCULOSIS
     Route: 065
     Dates: start: 19940211
  9. PYRAZINAMIDE [Suspect]
     Indication: PULMONARY TUBERCULOSIS
     Route: 065
     Dates: start: 19940211, end: 19940325
  10. DIDANOSINE [Concomitant]
     Route: 065
  11. TRIMETHOPRIM + SULFAMETHOXAZOLE [Concomitant]
     Route: 065
  12. VANCOMYCIN [Concomitant]
     Route: 065
     Dates: start: 19940304
  13. HALDOL [Concomitant]
     Route: 065
  14. COGENTIN [Concomitant]

REACTIONS (1)
  - HYPERGLYCAEMIA [None]
